FAERS Safety Report 7234972-7 (Version None)
Quarter: 2010Q4

REPORT INFORMATION
  Report Type: 
  Country: None (occurrence: None)
  Receive Date: 20101130
  Receipt Date: 20090818
  Transmission Date: 20110411
  Serious: Yes (Hospitalization)
  Sender: FDA-Public Use
  Company Number: 2009-195804-NL

PATIENT
  Age: 32 Year
  Sex: Female
  Weight: 81.6 kg

DRUGS (2)
  1. NUVARING [Suspect]
     Indication: MENSTRUAL CYCLE MANAGEMENT
     Dosage: VAG
     Route: 067
     Dates: start: 20070501, end: 20070912
  2. NUVARING [Suspect]
     Indication: MUSCLE SPASMS
     Dosage: VAG
     Route: 067
     Dates: start: 20070501, end: 20070912

REACTIONS (2)
  - ANXIETY [None]
  - PULMONARY EMBOLISM [None]
